FAERS Safety Report 8188358-1 (Version None)
Quarter: 2012Q1

REPORT INFORMATION
  Report Type: 
  Country: None (occurrence: None)
  Receive Date: 20120306
  Receipt Date: 20120227
  Transmission Date: 20120608
  Serious: Yes (Hospitalization)
  Sender: FDA-Public Use
  Company Number: ES-NOVOPROD-344298

PATIENT
  Age: 76 Year
  Sex: Female

DRUGS (2)
  1. VICTOZA [Suspect]
     Indication: TYPE 2 DIABETES MELLITUS
     Dosage: UNK
     Route: 058
     Dates: start: 20111229, end: 20111229
  2. ASPIRIN [Concomitant]
     Dosage: 300 MG, QD
     Route: 048
     Dates: start: 20100101

REACTIONS (1)
  - COLONIC POLYP [None]
